FAERS Safety Report 21058807 (Version 1)
Quarter: 2022Q3

REPORT INFORMATION
  Report Type: Spontaneous
  Country: US (occurrence: None)
  Receive Date: 20220708
  Receipt Date: 20220708
  Transmission Date: 20221027
  Serious: No
  Sender: FDA-Public Use
  Company Number: None

PATIENT
  Age: 66 Year
  Sex: Male
  Weight: 102.06 kg

DRUGS (1)
  1. COSENTYX [Suspect]
     Active Substance: SECUKINUMAB
     Indication: Psoriatic arthropathy
     Dosage: INJECTE 300MG (2 PENS) SUBCUTANEOUSLY ONCE A WEEK FOR 5 WEEKS AS DIRECTED
     Dates: start: 202112

REACTIONS (1)
  - Therapy interrupted [None]
